FAERS Safety Report 5169049-8 (Version None)
Quarter: 2006Q4

REPORT INFORMATION
  Report Type: 
  Country: None (occurrence: None)
  Receive Date: 20061204
  Receipt Date: 20061116
  Transmission Date: 20070319
  Serious: Yes (Other)
  Sender: FDA-Public Use
  Company Number: SPV1-2006-01717

PATIENT
  Age: 30 Year
  Sex: Female
  Weight: 54.4 kg

DRUGS (3)
  1. ADDERALL 10 [Suspect]
     Indication: ATTENTION DEFICIT/HYPERACTIVITY DISORDER
     Dosage: SEE IMAGE
     Route: 048
     Dates: start: 20050101, end: 20060501
  2. ADDERALL 10 [Suspect]
     Indication: ATTENTION DEFICIT/HYPERACTIVITY DISORDER
     Dosage: SEE IMAGE
     Route: 048
     Dates: start: 20060501, end: 20061001
  3. CALCI-CHEW [Concomitant]

REACTIONS (5)
  - ANXIETY [None]
  - HEADACHE [None]
  - LOSS OF CONSCIOUSNESS [None]
  - MOOD ALTERED [None]
  - PALPITATIONS [None]
